FAERS Safety Report 20968732 (Version 2)
Quarter: 2023Q1

REPORT INFORMATION
  Report Type: Spontaneous
  Country: IN (occurrence: IN)
  Receive Date: 20220616
  Receipt Date: 20230202
  Transmission Date: 20230417
  Serious: Yes (Other)
  Sender: FDA-Public Use
  Company Number: IN-PFIZER INC-202101093376

PATIENT
  Age: 58 Year
  Sex: Female
  Weight: 58.7 kg

DRUGS (8)
  1. PALBOCICLIB [Suspect]
     Active Substance: PALBOCICLIB
     Dosage: 125 MG, 1X/DAY
     Route: 048
     Dates: start: 20210821
  2. PALBOCICLIB [Suspect]
     Active Substance: PALBOCICLIB
     Dosage: 125 MG, 1X/DAY
     Route: 048
     Dates: start: 202110, end: 202206
  3. PALBOCICLIB [Suspect]
     Active Substance: PALBOCICLIB
     Dosage: 100 MG, 1X/DAY
     Route: 048
     Dates: start: 202206
  4. FULVESTRANT [Concomitant]
     Active Substance: FULVESTRANT
     Dosage: 500 MG, 21/08, 04/09 AND 15/09 THEN EVERY 28 DAYS
  5. DENOSUMAB [Concomitant]
     Active Substance: DENOSUMAB
     Dosage: 120 MG EVERY 6 WEEKS
  6. DENOSUMAB [Concomitant]
     Active Substance: DENOSUMAB
     Dosage: UNK, MONTHLY
  7. SHELCAL [CALCIUM CARBONATE;COLECALCIFEROL] [Concomitant]
     Dosage: 1 DF, 1X/DAY
  8. SHELCAL OS [Concomitant]
     Dosage: 1 DF, 2X/DAY

REACTIONS (8)
  - Gastritis erosive [Unknown]
  - Blood pressure increased [Unknown]
  - Off label use [Unknown]
  - Chest pain [Unknown]
  - Neoplasm progression [Unknown]
  - Vomiting [Unknown]
  - Helicobacter test positive [Unknown]
  - Gamma-glutamyltransferase increased [Unknown]
